FAERS Safety Report 12436998 (Version 1)
Quarter: 2016Q2

REPORT INFORMATION
  Report Type: Spontaneous
  Country: US (occurrence: None)
  Receive Date: 20160603
  Receipt Date: 20160603
  Transmission Date: 20160815
  Serious: Yes (Hospitalization)
  Sender: FDA-Public Use
  Company Number: None

PATIENT
  Age: 45 Year
  Sex: Female
  Weight: 73.48 kg

DRUGS (7)
  1. JADENU [Suspect]
     Active Substance: DEFERASIROX
     Indication: HAEMOCHROMATOSIS
     Route: 048
     Dates: start: 20160225, end: 20160425
  2. TYLENOL [Concomitant]
     Active Substance: ACETAMINOPHEN
  3. NEURONTIN [Concomitant]
     Active Substance: GABAPENTIN
  4. COLACE [Concomitant]
     Active Substance: DOCUSATE SODIUM
  5. MYLANTA [Concomitant]
     Active Substance: ALUMINUM HYDROXIDE\DIMETHICONE\MAGNESIUM HYDROXIDE
  6. CIPROFLOXACIN. [Concomitant]
     Active Substance: CIPROFLOXACIN
  7. PANTOPRAZOLE [Concomitant]
     Active Substance: PANTOPRAZOLE SODIUM

REACTIONS (6)
  - Renal failure [None]
  - Hepatic function abnormal [None]
  - Brain oedema [None]
  - Coma [None]
  - Respiratory failure [None]
  - Ammonia increased [None]

NARRATIVE: CASE EVENT DATE: 20160425
